FAERS Safety Report 23129346 (Version 2)
Quarter: 2025Q1

REPORT INFORMATION
  Report Type: Report from Study
  Country: PH (occurrence: PH)
  Receive Date: 20231031
  Receipt Date: 20250304
  Transmission Date: 20250408
  Serious: Yes (Hospitalization)
  Sender: OTSUKA
  Company Number: PH-OTSUKA-2023_027769

PATIENT
  Sex: Female

DRUGS (2)
  1. TOLVAPTAN [Suspect]
     Active Substance: TOLVAPTAN
     Indication: Product used for unknown indication
     Dosage: 15 MG, QD
     Route: 048
     Dates: start: 20230817
  2. TOLVAPTAN [Suspect]
     Active Substance: TOLVAPTAN
     Dosage: 1 DF, QW (15 MG ONE TABLET ONCE A WEEK)
     Route: 065

REACTIONS (3)
  - Cardiac failure [Unknown]
  - Dyspnoea [Unknown]
  - Inappropriate schedule of product administration [Unknown]
